FAERS Safety Report 10682256 (Version 3)
Quarter: 2015Q2

REPORT INFORMATION
  Report Type: Report from Study
  Country: DE (occurrence: DE)
  Receive Date: 20141230
  Receipt Date: 20150519
  Transmission Date: 20150821
  Serious: Yes (Hospitalization)
  Sender: FDA-Public Use
  Company Number: DE-JNJFOC-20141014214

PATIENT
  Age: 42 Year
  Sex: Male
  Weight: 98 kg

DRUGS (2)
  1. REMICADE [Suspect]
     Active Substance: INFLIXIMAB
     Indication: CROHN^S DISEASE
     Route: 042
     Dates: start: 20140527
  2. REMICADE [Suspect]
     Active Substance: INFLIXIMAB
     Indication: CROHN^S DISEASE
     Route: 042
     Dates: start: 20140709, end: 20140709

REACTIONS (6)
  - Abscess [Recovering/Resolving]
  - Abdominal wall abscess [Not Recovered/Not Resolved]
  - Abscess limb [Not Recovered/Not Resolved]
  - Scrotal abscess [Not Recovered/Not Resolved]
  - Abscess [Recovered/Resolved]
  - Abscess limb [Recovered/Resolved]

NARRATIVE: CASE EVENT DATE: 20140711
